FAERS Safety Report 9304787 (Version 1)
Quarter: 2013Q2

REPORT INFORMATION
  Report Type: Spontaneous
  Country: US (occurrence: None)
  Receive Date: 20130521
  Receipt Date: 20130521
  Transmission Date: 20140414
  Serious: Yes (Hospitalization)
  Sender: FDA-Public Use
  Company Number: None

PATIENT
  Age: 36 Year
  Sex: Male
  Weight: 81.8 kg

DRUGS (1)
  1. CLOZAPINE [Suspect]
     Route: 048
     Dates: start: 20120805, end: 20130513

REACTIONS (3)
  - Respiratory depression [None]
  - Hypoxia [None]
  - Respiratory failure [None]
